FAERS Safety Report 22122528 (Version 3)
Quarter: 2023Q1

REPORT INFORMATION
  Report Type: Report from Study
  Country: NL (occurrence: NL)
  Receive Date: 20230321
  Receipt Date: 20230324
  Transmission Date: 20230418
  Serious: Yes (Death, Other)
  Sender: FDA-Public Use
  Company Number: NL-VER-202300025

PATIENT
  Age: 76 Year
  Sex: Male

DRUGS (1)
  1. TRIPTORELIN [Suspect]
     Active Substance: TRIPTORELIN
     Indication: Prostate cancer
     Dosage: OTHER BATCH/LOT NUMBER REPORTED WAS U22821 WITH EXPIRATION DATE NOV-2023. NEW OTHER BATCH NUMBER WAS
     Route: 030
     Dates: start: 20211005

REACTIONS (2)
  - Death [Fatal]
  - Hot flush [Not Recovered/Not Resolved]

NARRATIVE: CASE EVENT DATE: 20220101
